FAERS Safety Report 10269531 (Version 1)
Quarter: 2014Q3

REPORT INFORMATION
  Report Type: Spontaneous
  Country: SK (occurrence: SK)
  Receive Date: 20140701
  Receipt Date: 20140701
  Transmission Date: 20150326
  Serious: Yes (Other)
  Sender: FDA-Public Use
  Company Number: SK-AMGEN INC.-SVKSP2014048321

PATIENT
  Age: 75 Year
  Sex: Male

DRUGS (9)
  1. OLICARD [Concomitant]
     Dosage: UNK UNK, QD
     Route: 048
  2. CANDESARTAN [Concomitant]
     Active Substance: CANDESARTAN
     Dosage: UNK UNK, QD
     Route: 048
  3. CARVEDIGAMMA [Concomitant]
     Dosage: UNK
  4. PROLIA [Suspect]
     Active Substance: DENOSUMAB
     Indication: OSTEOPOROSIS
     Dosage: 1 DF, UNK
     Route: 058
     Dates: start: 20140609, end: 20140609
  5. CORDARONE [Concomitant]
     Active Substance: AMIODARONE HYDROCHLORIDE
     Dosage: UNK UNK, QD
     Route: 048
  6. ROSUCARD [Concomitant]
     Dosage: UNK UNK, QD
     Route: 048
  7. WARFARIN [Concomitant]
     Active Substance: WARFARIN
     Dosage: 5 MG, QD
     Route: 048
  8. CORVATON [Concomitant]
     Active Substance: MOLSIDOMINE
     Dosage: UNK
  9. TRIMETAZIDIN [Concomitant]
     Dosage: UNK

REACTIONS (1)
  - Blood urine present [Recovering/Resolving]

NARRATIVE: CASE EVENT DATE: 20140611
